FAERS Safety Report 9279599 (Version 1)
Quarter: 2013Q2

REPORT INFORMATION
  Report Type: Report from Study
  Country: US (occurrence: US)
  Receive Date: 20130509
  Receipt Date: 20130509
  Transmission Date: 20140414
  Serious: Yes (Death)
  Sender: FDA-Public Use
  Company Number: US-ROCHE-1222650

PATIENT
  Sex: 0

DRUGS (3)
  1. TRASTUZUMAB [Suspect]
     Indication: HER-2 POSITIVE BREAST CANCER
     Route: 065
  2. CARBOPLATIN [Concomitant]
     Indication: HER-2 POSITIVE BREAST CANCER
  3. PACLITAXEL [Concomitant]
     Indication: HER-2 POSITIVE BREAST CANCER

REACTIONS (1)
  - Death [Fatal]
